FAERS Safety Report 5071405-3 (Version None)
Quarter: 2006Q3

REPORT INFORMATION
  Report Type: 
  Country: None (occurrence: None)
  Receive Date: 20060804
  Receipt Date: 20060419
  Transmission Date: 20061208
  Serious: No
  Sender: FDA-Public Use
  Company Number: US-AMGEN-US176994

PATIENT
  Age: 74 Year
  Sex: Female

DRUGS (12)
  1. ARANESP [Suspect]
     Indication: MYELODYSPLASTIC SYNDROME
     Dates: start: 20051101, end: 20060101
  2. FOSAMAX [Concomitant]
  3. ESTRADIOL INJ [Concomitant]
  4. LEVOTHYROXINE SODIUM [Concomitant]
  5. METRONIDAZOLE [Concomitant]
  6. HYDROCHLOROTHIAZIDE [Concomitant]
  7. POTASSIUM [Concomitant]
  8. VITAMIN B-12 [Concomitant]
  9. VITAMIN D [Concomitant]
  10. ASCORBIC ACID [Concomitant]
  11. CALCIUM GLUCONATE [Concomitant]
  12. ALPHAGAN [Concomitant]

REACTIONS (2)
  - BLOOD PRESSURE INCREASED [None]
  - HEADACHE [None]
